FAERS Safety Report 8761261 (Version 2)
Quarter: 2012Q4

REPORT INFORMATION
  Report Type: 
  Country: US (occurrence: US)
  Receive Date: 20120830
  Receipt Date: 20120920
  Transmission Date: 20130627
  Serious: Yes (Hospitalization)
  Sender: FDA-Public Use
  Company Number: US-009507513-1208USA011116

PATIENT
  Age: 58 Year
  Sex: Male

DRUGS (1)
  1. FOSAMAX [Suspect]
     Dosage: UNK
     Route: 048

REACTIONS (2)
  - Spinal compression fracture [Not Recovered/Not Resolved]
  - Failed examinations [Not Recovered/Not Resolved]
